FAERS Safety Report 5677962-8 (Version None)
Quarter: 2008Q1

REPORT INFORMATION
  Report Type: 
  Country: None (occurrence: None)
  Receive Date: 20080319
  Receipt Date: 20080303
  Transmission Date: 20080703
  Serious: Yes (Hospitalization)
  Sender: FDA-Public Use
  Company Number: 8030353

PATIENT
  Age: 22 Year
  Sex: Male

DRUGS (3)
  1. KEPPRA [Suspect]
     Dosage: 250 MG 2/D
     Dates: end: 20080227
  2. NIACINAMIDE [Concomitant]
  3. PRIMIDONE [Concomitant]

REACTIONS (4)
  - ALANINE AMINOTRANSFERASE INCREASED [None]
  - ASPARTATE AMINOTRANSFERASE INCREASED [None]
  - BLOOD ALKALINE PHOSPHATASE INCREASED [None]
  - PNEUMONIA ASPIRATION [None]
